FAERS Safety Report 7404319-1 (Version None)
Quarter: 2011Q2

REPORT INFORMATION
  Report Type: 
  Country: None (occurrence: None)
  Receive Date: 20110408
  Receipt Date: 20110331
  Transmission Date: 20111010
  Serious: Yes (Other)
  Sender: FDA-Public Use
  Company Number: NO-ROCHE-768415

PATIENT
  Sex: Male

DRUGS (1)
  1. ROACTEMRA [Suspect]
     Dosage: FREQUENCY NOT REPORTED
     Route: 042
     Dates: start: 20110309, end: 20110309

REACTIONS (3)
  - MUSCLE SPASMS [None]
  - INSOMNIA [None]
  - CONVULSION [None]
